FAERS Safety Report 9689572 (Version 2)
Quarter: 2013Q4

REPORT INFORMATION
  Report Type: Spontaneous
  Country: SI (occurrence: SI)
  Receive Date: 20131115
  Receipt Date: 20131206
  Transmission Date: 20140711
  Serious: Yes (Hospitalization, Other)
  Sender: FDA-Public Use
  Company Number: SI-AMGEN-SVNSP2013079676

PATIENT
  Age: 75 Year
  Sex: Male

DRUGS (10)
  1. XGEVA [Suspect]
     Indication: PROPHYLAXIS
     Dosage: UNK
     Route: 065
     Dates: start: 20130327
  2. XGEVA [Suspect]
     Indication: PROSTATE CANCER
  3. ANDROCUR [Concomitant]
     Dosage: 100 MG, UNK
  4. TRITACE [Concomitant]
  5. TULIP                              /00435301/ [Concomitant]
  6. ASPIRIN [Concomitant]
  7. HELEX [Concomitant]
  8. CALCII CARBONAS [Concomitant]
  9. PLIVIT D3 [Concomitant]
  10. FRAGMIN [Concomitant]

REACTIONS (2)
  - Traumatic arthrosis [Unknown]
  - Metastases to spine [Unknown]
